FAERS Safety Report 6448811-5 (Version None)
Quarter: 2009Q4

REPORT INFORMATION
  Report Type: 
  Country: None (occurrence: None)
  Receive Date: 20091120
  Receipt Date: 20091112
  Transmission Date: 20100525
  Serious: Yes (Hospitalization)
  Sender: FDA-Public Use
  Company Number: PHHY2009DE47045

PATIENT
  Sex: Male

DRUGS (1)
  1. ZOMETA [Suspect]
     Indication: PROSTATE CANCER METASTATIC
     Dosage: 4 MG EVERY 4 WEEK
     Route: 042
     Dates: start: 20081106

REACTIONS (2)
  - JOINT INSTABILITY [None]
  - SPINAL FUSION SURGERY [None]
